FAERS Safety Report 8787940 (Version 2)
Quarter: 2012Q4

REPORT INFORMATION
  Report Type: 
  Country: US (occurrence: US)
  Receive Date: 20120914
  Receipt Date: 20121127
  Transmission Date: 20130627
  Serious: Yes (Death)
  Sender: FDA-Public Use
  Company Number: US-ROCHE-1127467

PATIENT
  Sex: Female

DRUGS (3)
  1. AVASTIN [Suspect]
     Indication: BRAIN NEOPLASM MALIGNANT
     Route: 042
     Dates: start: 20090106, end: 20091006
  2. AVASTIN [Suspect]
     Indication: GLIOBLASTOMA
  3. IRINOTECAN [Concomitant]
     Route: 065
     Dates: start: 200901, end: 200910

REACTIONS (1)
  - Disease progression [Fatal]
